FAERS Safety Report 6099408-0 (Version None)
Quarter: 2009Q1

REPORT INFORMATION
  Report Type: 
  Country: None (occurrence: None)
  Receive Date: 20090226
  Receipt Date: 20090226
  Transmission Date: 20090719
  Serious: Yes (Hospitalization)
  Sender: FDA-Public Use
  Company Number: None

PATIENT
  Age: 51 Year
  Sex: Male
  Weight: 86.2 kg

DRUGS (1)
  1. DISULFIRAM [Suspect]
     Indication: ALCOHOLISM
     Dosage: 125 MG PM PO
     Route: 048
     Dates: start: 20080822, end: 20081007

REACTIONS (2)
  - ACUTE HEPATIC FAILURE [None]
  - NO THERAPEUTIC RESPONSE [None]
